FAERS Safety Report 10703162 (Version 1)
Quarter: 2015Q1

REPORT INFORMATION
  Report Type: Spontaneous
  Country: VN (occurrence: VN)
  Receive Date: 20150112
  Receipt Date: 20150112
  Transmission Date: 20150721
  Serious: Yes (Other)
  Sender: FDA-Public Use
  Company Number: VN-ROCHE-1518663

PATIENT
  Age: 59 Year

DRUGS (6)
  1. MABTHERA [Suspect]
     Active Substance: RITUXIMAB
     Dosage: FOR MAINTAINANCE DOSAGE.
     Route: 042
     Dates: start: 201305, end: 20140623
  2. EPIRUBICIN [Concomitant]
     Active Substance: EPIRUBICIN
  3. MABTHERA [Suspect]
     Active Substance: RITUXIMAB
     Indication: DIFFUSE LARGE B-CELL LYMPHOMA
     Dosage: RCHOP REGIMEN
     Route: 042
     Dates: start: 200902
  4. MABTHERA [Suspect]
     Active Substance: RITUXIMAB
     Dosage: REPOCH REGIMEN 6 CYCLES
     Route: 042
     Dates: start: 201209, end: 201302
  5. DOXORUBICIN [Concomitant]
     Active Substance: DOXORUBICIN
  6. MABTHERA [Suspect]
     Active Substance: RITUXIMAB
     Dosage: RESHAP 3 CYCLES
     Route: 042
     Dates: start: 20141008

REACTIONS (9)
  - Chest pain [Unknown]
  - Hyperhidrosis [Unknown]
  - Fatigue [Unknown]
  - Productive cough [Unknown]
  - Disease recurrence [Unknown]
  - Pain in extremity [Unknown]
  - Decreased appetite [Unknown]
  - Nausea [Unknown]
  - Back pain [Unknown]

NARRATIVE: CASE EVENT DATE: 20141118
